FAERS Safety Report 4710968-1 (Version None)
Quarter: 2005Q3

REPORT INFORMATION
  Report Type: 
  Country: None (occurrence: None)
  Receive Date: 20050711
  Receipt Date: 20050704
  Transmission Date: 20060218
  Serious: Yes (Other)
  Sender: FDA-Public Use
  Company Number: PHNR2005AU01040

PATIENT
  Age: 24 Year
  Sex: Female

DRUGS (3)
  1. TEGRETOL [Suspect]
  2. IMPLANON [Suspect]
     Indication: CONTRACEPTION
     Dosage: UNK, UNK
     Dates: start: 20020514, end: 20040522
  3. MOMETASONE FUROATE [Concomitant]

REACTIONS (4)
  - ABORTION INDUCED [None]
  - DRUG INTERACTION [None]
  - PREGNANCY WITH IMPLANT CONTRACEPTIVE [None]
  - UNINTENDED PREGNANCY [None]
